FAERS Safety Report 17944944 (Version 1)
Quarter: 2020Q2

REPORT INFORMATION
  Report Type: Spontaneous
  Country: US (occurrence: US)
  Receive Date: 20200625
  Receipt Date: 20200625
  Transmission Date: 20200714
  Serious: No
  Sender: FDA-Public Use
  Company Number: US-SA-2016SA215966

PATIENT

DRUGS (2)
  1. LANTUS [Suspect]
     Active Substance: INSULIN GLARGINE
     Indication: TYPE 2 DIABETES MELLITUS
     Dosage: 35 IU, QD
     Route: 065
     Dates: start: 2012
  2. LANTUS [Suspect]
     Active Substance: INSULIN GLARGINE
     Dosage: 45 IU, QD

REACTIONS (2)
  - Device issue [Unknown]
  - Blood glucose increased [Unknown]

NARRATIVE: CASE EVENT DATE: 20161121
